FAERS Safety Report 9513087 (Version 3)
Quarter: 2013Q3

REPORT INFORMATION
  Report Type: Report from Study
  Country: US (occurrence: US)
  Receive Date: 20130910
  Receipt Date: 20130923
  Transmission Date: 20140515
  Serious: Yes (Death, Hospitalization)
  Sender: FDA-Public Use
  Company Number: US-ACTELION-A-NJ2013-86361

PATIENT
  Age: 80 Year
  Sex: Male

DRUGS (2)
  1. TRACLEER [Suspect]
     Indication: PULMONARY ARTERIAL HYPERTENSION
     Dosage: UNK
     Route: 048
     Dates: end: 20130822
  2. COUMADIN [Concomitant]

REACTIONS (4)
  - Pulmonary hypertension [Fatal]
  - Cardiac failure congestive [Fatal]
  - Disease complication [Fatal]
  - Hypotension [Unknown]
